FAERS Safety Report 6722408-1 (Version None)
Quarter: 2010Q2

REPORT INFORMATION
  Report Type: 
  Country: None (occurrence: None)
  Receive Date: 20100512
  Receipt Date: 20100503
  Transmission Date: 20101027
  Serious: Yes (Hospitalization)
  Sender: FDA-Public Use
  Company Number: US-SHIRE-ALL1-2010-02571

PATIENT

DRUGS (8)
  1. FOSRENOL [Suspect]
     Indication: HYPERPHOSPHATAEMIA
     Dosage: TWO 500 MG. TABLET FOR A TOTAL OF 1000 MG. THREE TIMES DAILY
     Route: 048
     Dates: start: 20091101
  2. COREG [Concomitant]
     Indication: CARDIAC FAILURE CONGESTIVE
     Dosage: 3.125 MG, 2X/DAY:BID
     Route: 048
     Dates: start: 20040101
  3. CRESTOR [Concomitant]
     Indication: CARDIAC FAILURE CONGESTIVE
     Dosage: 20 MG, 1X/DAY:QD
     Route: 048
     Dates: start: 20040101
  4. LASIX [Concomitant]
     Indication: CARDIAC FAILURE CONGESTIVE
     Dosage: 80 MG, 1X/DAY:QD
     Route: 048
     Dates: start: 20040101
  5. ASPIRIN [Concomitant]
     Indication: CARDIAC FAILURE CONGESTIVE
     Dosage: 325 MG, 1X/DAY:QD
     Route: 048
     Dates: start: 20040101
  6. PLAVIX [Concomitant]
     Indication: CARDIAC FAILURE CONGESTIVE
     Dosage: 75 MG, 1X/DAY:QD
     Route: 048
     Dates: start: 20040101
  7. NEUROTIN                           /00949202/ [Concomitant]
     Indication: RESTLESS LEGS SYNDROME
     Dosage: 100 MG, 2X/DAY:BID
     Route: 048
     Dates: start: 20090101
  8. RESTORIL [Concomitant]
     Indication: SLEEP DISORDER
     Dosage: 15 MG. AT NIGHT
     Route: 048
     Dates: start: 20090101

REACTIONS (2)
  - DIARRHOEA [None]
  - STENT PLACEMENT [None]
